FAERS Safety Report 25657569 (Version 1)
Quarter: 2025Q3

REPORT INFORMATION
  Report Type: Spontaneous
  Country: CN (occurrence: CN)
  Receive Date: 20250808
  Receipt Date: 20250808
  Transmission Date: 20251021
  Serious: Yes (Hospitalization)
  Sender: EMD SERONO INC
  Company Number: CN-Merck Healthcare KGaA-2025039054

PATIENT
  Age: 32 Year
  Sex: Female

DRUGS (8)
  1. LUVERIS [Suspect]
     Active Substance: LUTROPIN ALFA
     Indication: Ovulation induction
     Dates: start: 20230912, end: 20230914
  2. LUVERIS [Suspect]
     Active Substance: LUTROPIN ALFA
     Indication: In vitro fertilisation
  3. OVIDREL [Suspect]
     Active Substance: CHORIOGONADOTROPIN ALFA
     Indication: Ovulation induction
     Dates: start: 20230918, end: 20230918
  4. OVIDREL [Suspect]
     Active Substance: CHORIOGONADOTROPIN ALFA
     Indication: In vitro fertilisation
  5. FOLLITROPIN BETA [Suspect]
     Active Substance: FOLLITROPIN BETA
     Indication: Ovulation induction
     Dates: start: 20230908, end: 20230914
  6. FOLLITROPIN BETA [Suspect]
     Active Substance: FOLLITROPIN BETA
     Indication: In vitro fertilisation
  7. FOLLITROPIN [Suspect]
     Active Substance: FOLLITROPIN
     Indication: Ovulation induction
     Dates: start: 20230915, end: 20230915
  8. FOLLITROPIN [Suspect]
     Active Substance: FOLLITROPIN
     Indication: In vitro fertilisation

REACTIONS (1)
  - Ovarian hyperstimulation syndrome [Recovering/Resolving]

NARRATIVE: CASE EVENT DATE: 20230920
